FAERS Safety Report 21386378 (Version 3)
Quarter: 2023Q1

REPORT INFORMATION
  Report Type: Spontaneous
  Country: US (occurrence: US)
  Receive Date: 20220928
  Receipt Date: 20230109
  Transmission Date: 20230418
  Serious: No
  Sender: FDA-Public Use
  Company Number: US-PHARMING-PHAUS2022000665

PATIENT

DRUGS (3)
  1. RUCONEST [Suspect]
     Active Substance: HUMAN C1-ESTERASE INHIBITOR
     Indication: Hereditary angioedema
     Dosage: 2100 IU, THREE TIMES A WEEK
     Route: 042
     Dates: start: 20160106
  2. RUCONEST [Suspect]
     Active Substance: HUMAN C1-ESTERASE INHIBITOR
     Dosage: 2100 IU, THREE TIMES A WEEK
     Route: 042
     Dates: start: 20160106
  3. RUCONEST [Suspect]
     Active Substance: HUMAN C1-ESTERASE INHIBITOR
     Dosage: 2100 IU, THREE TIMES A WEEK
     Route: 042
     Dates: start: 201601

REACTIONS (3)
  - Weight decreased [Unknown]
  - Intentional product use issue [Unknown]
  - Product dose omission issue [Unknown]
